FAERS Safety Report 16447035 (Version 4)
Quarter: 2019Q3

REPORT INFORMATION
  Report Type: Report from Study
  Country: US (occurrence: US)
  Receive Date: 20190618
  Receipt Date: 20190917
  Transmission Date: 20191004
  Serious: Yes (Other)
  Sender: FDA-Public Use
  Company Number: US-SHIRE-US201918541

PATIENT
  Sex: Female

DRUGS (1)
  1. HUMAN NORMAL IMMUNOGLOBULIN; LIQUID [Suspect]
     Active Substance: HUMAN IMMUNOGLOBULIN G
     Indication: IMMUNODEFICIENCY COMMON VARIABLE
     Dosage: 40 GRAM, 1X A MONTH
     Route: 042

REACTIONS (10)
  - Viral infection [Unknown]
  - Ear pain [Unknown]
  - Pyrexia [Unknown]
  - Product availability issue [Unknown]
  - Migraine [Unknown]
  - Infusion related reaction [Unknown]
  - Inappropriate schedule of product administration [Unknown]
  - Dehydration [Unknown]
  - Urinary tract infection [Unknown]
  - Incorrect drug administration rate [Unknown]
